FAERS Safety Report 6446832-X (Version None)
Quarter: 2009Q4

REPORT INFORMATION
  Report Type: 
  Country: None (occurrence: None)
  Receive Date: 20091119
  Receipt Date: 20091115
  Transmission Date: 20100525
  Serious: Yes (Death)
  Sender: FDA-Public Use
  Company Number: PHHY2009IL50265

PATIENT
  Age: 40 Year
  Sex: Male

DRUGS (1)
  1. SANDOSTATIN LAR [Suspect]
     Indication: NEUROENDOCRINE TUMOUR
     Dosage: 30 MG, EVERY 28 DAYS

REACTIONS (4)
  - COLON OPERATION [None]
  - LARGE INTESTINE PERFORATION [None]
  - PERITONITIS [None]
  - RESPIRATORY FAILURE [None]
